FAERS Safety Report 22869773 (Version 2)
Quarter: 2023Q4

REPORT INFORMATION
  Report Type: Spontaneous
  Country: PT (occurrence: PT)
  Receive Date: 20230826
  Receipt Date: 20231006
  Transmission Date: 20240110
  Serious: Yes (Other)
  Sender: FDA-Public Use
  Company Number: PT-INFARMED-T202308-111

PATIENT
  Age: 28 Year
  Sex: Female
  Weight: 50 kg

DRUGS (6)
  1. HYDROCORTISONE [Suspect]
     Active Substance: HYDROCORTISONE
     Indication: Urticaria
     Dosage: TRATOU-SE DE UMA INJE??O, MAS N?O FOI FORNECIDA INFORMA??O MAIS ESPEC?FICA
     Route: 065
     Dates: start: 20230803
  2. BUDESONIDE [Suspect]
     Active Substance: BUDESONIDE
     Indication: Rhinorrhoea
     Dosage: 400 MICROGRAM, ONCE A DAY(2 PULVERIZA??ES EM CADA NARINA ? NOITE)
     Route: 045
     Dates: start: 20230731, end: 20230802
  3. DEFLAZACORT [Suspect]
     Active Substance: DEFLAZACORT
     Indication: Urticaria
     Dosage: O NOTIFICADOR MENCIONOU QUE A DOENTE TOMOU 1 COMPRIMIDO
     Route: 048
     Dates: start: 20230803, end: 20230803
  4. EBASTINE [Concomitant]
     Active Substance: EBASTINE
     Indication: Cough
     Dosage: UNK
     Route: 048
  5. IBUPROFEN [Concomitant]
     Active Substance: IBUPROFEN
     Indication: Cough
     Dosage: UNK
     Route: 065
  6. Anette [Concomitant]
     Indication: Product used for unknown indication
     Dosage: UNK
     Route: 065

REACTIONS (2)
  - Urticaria [Recovered/Resolved]
  - Angioedema [Recovered/Resolved]

NARRATIVE: CASE EVENT DATE: 20230802
